FAERS Safety Report 11093979 (Version 2)
Quarter: 2015Q3

REPORT INFORMATION
  Report Type: Report from Study
  Country: US (occurrence: US)
  Receive Date: 20150506
  Receipt Date: 20150814
  Transmission Date: 20151125
  Serious: Yes (Hospitalization)
  Sender: FDA-Public Use
  Company Number: US-UCBSA-2015013269

PATIENT
  Age: 17 Year
  Sex: Male
  Weight: 71.7 kg

DRUGS (17)
  1. TRAMADOL. [Concomitant]
     Active Substance: TRAMADOL
     Indication: PAIN
     Dosage: 100 MG, ONCE DAILY (QD)
     Route: 048
     Dates: start: 20140606
  2. CERTOLIZUMAB PEGOL JIA [Suspect]
     Active Substance: CERTOLIZUMAB PEGOL
     Indication: JUVENILE IDIOPATHIC ARTHRITIS
     Dosage: 100 MG, EV 2 WEEKS(QOW)
     Route: 058
     Dates: start: 20120418, end: 20150415
  3. MOBIC [Concomitant]
     Active Substance: MELOXICAM
     Indication: ARTHRALGIA
     Dosage: 7.5 MG, ONCE DAILY (QD)
     Route: 048
     Dates: start: 20131127
  4. FOLVITE [Concomitant]
     Active Substance: FOLIC ACID
     Indication: SUPPLEMENTATION THERAPY
     Dosage: 1-5 MG ONCE DAILY
     Route: 048
     Dates: start: 20101229, end: 20141125
  5. FLEXERIL [Concomitant]
     Active Substance: CYCLOBENZAPRINE HYDROCHLORIDE
     Indication: INSOMNIA
     Dosage: 10 MG, AS NEEDED (PRN) (BED TIME)
     Route: 048
     Dates: start: 20120201
  6. FOLVITE [Concomitant]
     Active Substance: FOLIC ACID
     Dosage: 7.5 MG, ONCE DAILY (QD)
     Route: 048
     Dates: start: 20141126
  7. MELATONIN [Concomitant]
     Active Substance: MELATONIN
     Dosage: 5 MG, ONCE DAILY (QD)
     Route: 048
     Dates: start: 20150317
  8. LIDOCAIN [Concomitant]
     Active Substance: LIDOCAINE
     Indication: PAIN
     Dosage: 5 %, AS NEEDED (PRN)
     Route: 061
     Dates: start: 20130709
  9. ZANTAC [Concomitant]
     Active Substance: RANITIDINE HYDROCHLORIDE
     Indication: GASTROOESOPHAGEAL REFLUX DISEASE
     Dosage: 150 MG, ONCE DAILY (QD)
     Route: 048
     Dates: start: 20150220
  10. FIORICET [Concomitant]
     Active Substance: ACETAMINOPHEN\BUTALBITAL\CAFFEINE
     Indication: PROPHYLAXIS
     Dosage: 1 DF, AS NEEDED (PRN)
     Route: 048
     Dates: start: 20110101
  11. RHEUMATREX [Concomitant]
     Active Substance: METHOTREXATE SODIUM
     Indication: UVEITIS
     Dosage: 25 MG, WEEKLY (QW)
     Route: 058
     Dates: start: 20141011
  12. PRED FORTE [Concomitant]
     Active Substance: PREDNISOLONE ACETATE
     Indication: CHORIORETINITIS
     Dosage: 1 DF, 6X/DAY
     Route: 047
     Dates: start: 20141010
  13. BENADRYL [Concomitant]
     Active Substance: DIPHENHYDRAMINE HYDROCHLORIDE
     Indication: RASH
     Dosage: 25 MG, AS NEEDED (PRN)
     Route: 048
     Dates: start: 20101102
  14. RHEUMATREX [Concomitant]
     Active Substance: METHOTREXATE SODIUM
     Indication: JUVENILE IDIOPATHIC ARTHRITIS
     Dosage: 20 MG, WEEKLY (QW)
     Route: 048
     Dates: start: 20101229, end: 20141010
  15. NEVANAC [Concomitant]
     Active Substance: NEPAFENAC
     Indication: EPISCLERITIS
     Dosage: 1 DF, AS NEEDED (PRN)
     Route: 047
     Dates: start: 20100601
  16. MELATONIN [Concomitant]
     Active Substance: MELATONIN
     Indication: SLEEP DISORDER
     Dosage: 3 MG, AS NEEDED (PRN)
     Route: 048
     Dates: start: 20100601, end: 20120902
  17. MELATONIN [Concomitant]
     Active Substance: MELATONIN
     Indication: INSOMNIA
     Dosage: 1 DF, ONCE DAILY (QD) IN COMBINATION WITH L-THEANINE
     Route: 048
     Dates: start: 20120902, end: 20150316

REACTIONS (1)
  - Viral infection [Recovered/Resolved]

NARRATIVE: CASE EVENT DATE: 20150410
